FAERS Safety Report 25374120 (Version 1)
Quarter: 2025Q2

REPORT INFORMATION
  Report Type: Spontaneous
  Country: US (occurrence: US)
  Receive Date: 20250529
  Receipt Date: 20250529
  Transmission Date: 20250717
  Serious: No
  Sender: Kenvue
  Company Number: US-KENVUE-20250507964

PATIENT
  Age: 47 Year
  Sex: Female

DRUGS (1)
  1. WOMENS ROGAINE UNSCENTED [Suspect]
     Active Substance: MINOXIDIL
     Indication: Alopecia
     Dosage: HALF A CAPFUL, ONCE A DAY USED IT FOR FOR TWO WEEKS
     Route: 061
     Dates: start: 20241226, end: 202501

REACTIONS (1)
  - Application site bruise [Recovering/Resolving]

NARRATIVE: CASE EVENT DATE: 20241229
